FAERS Safety Report 12094886 (Version 1)
Quarter: 2016Q1

REPORT INFORMATION
  Report Type: Spontaneous
  Country: GB (occurrence: GB)
  Receive Date: 20160219
  Receipt Date: 20160219
  Transmission Date: 20160526
  Serious: Yes (Hospitalization)
  Sender: FDA-Public Use
  Company Number: GB-BRISTOL-MYERS SQUIBB COMPANY-10723914

PATIENT
  Age: 27 Year
  Sex: Female
  Weight: 84 kg

DRUGS (1)
  1. MODECATE [Suspect]
     Active Substance: FLUPHENAZINE DECANOATE
     Indication: MENTAL DISORDER
     Dosage: 50 MG, Q2WK
     Route: 030

REACTIONS (4)
  - Abdominal pain [Recovered/Resolved]
  - Normal newborn [Recovered/Resolved]
  - Breast feeding [Unknown]
  - Pregnancy on contraceptive [Unknown]

NARRATIVE: CASE EVENT DATE: 20010826
